FAERS Safety Report 24742058 (Version 2)
Quarter: 2024Q4

REPORT INFORMATION
  Report Type: Report from Study
  Country: US (occurrence: US)
  Receive Date: 20241217
  Receipt Date: 20241231
  Transmission Date: 20250115
  Serious: Yes (Other)
  Sender: ABBVIE
  Company Number: US-ABBVIE-6046071

PATIENT
  Age: 64 Year
  Sex: Female
  Weight: 72.574 kg

DRUGS (5)
  1. SKYRIZI [Suspect]
     Active Substance: RISANKIZUMAB-RZAA
     Indication: Crohn^s disease
     Dosage: 360 MILLIGRAM
     Route: 058
     Dates: start: 20221222
  2. PSORIASIN [Concomitant]
     Active Substance: COAL TAR
     Indication: Psoriasis
  3. ARAVA [Concomitant]
     Active Substance: LEFLUNOMIDE
     Indication: Arthritis
  4. PRAVASTATIN [Concomitant]
     Active Substance: PRAVASTATIN
     Indication: Lipids increased
  5. FAMOTIDINE [Concomitant]
     Active Substance: FAMOTIDINE
     Indication: Gastrooesophageal reflux disease

REACTIONS (1)
  - Cataract [Recovered/Resolved]

NARRATIVE: CASE EVENT DATE: 20241001
